FAERS Safety Report 24204747 (Version 4)
Quarter: 2024Q3

REPORT INFORMATION
  Report Type: Spontaneous
  Country: CH (occurrence: CH)
  Receive Date: 20240813
  Receipt Date: 20240920
  Transmission Date: 20241016
  Serious: No
  Sender: PFIZER
  Company Number: CH-PFIZER INC-202400225594

PATIENT
  Sex: Female

DRUGS (1)
  1. FRAGMIN [Suspect]
     Active Substance: DALTEPARIN SODIUM
     Dosage: UNK

REACTIONS (1)
  - Needle issue [Unknown]
